FAERS Safety Report 15316533 (Version 1)
Quarter: 2018Q3

REPORT INFORMATION
  Report Type: Spontaneous
  Country: US (occurrence: US)
  Receive Date: 20180816
  Receipt Date: 20180816
  Transmission Date: 20181010
  Serious: Yes (Death)
  Sender: FDA-Public Use
  Company Number: None

PATIENT
  Age: 79 Year
  Sex: Female

DRUGS (1)
  1. TEMOZOLOMIDE 20 MG [Suspect]
     Active Substance: TEMOZOLOMIDE
     Indication: PULMONARY MASS
     Dosage: MG DAYS 1,8, AND 15 PO
     Route: 048
     Dates: start: 20180418, end: 20180726

REACTIONS (1)
  - Death [None]

NARRATIVE: CASE EVENT DATE: 20180101
